FAERS Safety Report 7690966-9 (Version None)
Quarter: 2011Q3

REPORT INFORMATION
  Report Type: 
  Country: None (occurrence: None)
  Receive Date: 20110818
  Receipt Date: 20110808
  Transmission Date: 20111222
  Serious: Yes (Other)
  Sender: FDA-Public Use
  Company Number: IR-MPIJNJ-2011-03109

PATIENT

DRUGS (3)
  1. VELCADE [Suspect]
     Indication: AMYLOIDOSIS
     Dosage: 3.5 MG, UNK
     Route: 065
     Dates: start: 20110616
  2. MELPHALAN HYDROCHLORIDE [Concomitant]
     Dosage: 2 MG, UNK
  3. PREDNISOLONE [Concomitant]
     Dosage: 100 MG, UNK

REACTIONS (2)
  - BLOOD CREATININE INCREASED [None]
  - ACCIDENTAL OVERDOSE [None]
